FAERS Safety Report 8153811-3 (Version None)
Quarter: 2012Q1

REPORT INFORMATION
  Report Type: 
  Country: None (occurrence: None)
  Receive Date: 20120221
  Receipt Date: 20120213
  Transmission Date: 20120608
  Serious: Yes (Hospitalization)
  Sender: FDA-Public Use
  Company Number: TR-GLAXOSMITHKLINE-B0782391A

PATIENT
  Age: 69 Year
  Sex: Male

DRUGS (4)
  1. ANTIHYPERTENSIVE [Concomitant]
     Indication: HYPERTENSION
  2. XYZAL [Concomitant]
     Indication: HYPERSENSITIVITY
  3. DIALYSIS [Concomitant]
  4. VALTREX [Suspect]
     Indication: HERPES ZOSTER
     Dosage: 500MG TWICE PER DAY
     Route: 048
     Dates: start: 20120211, end: 20120212

REACTIONS (3)
  - SPEECH DISORDER [None]
  - MOVEMENT DISORDER [None]
  - LOSS OF CONSCIOUSNESS [None]
